FAERS Safety Report 7018578-0 (Version None)
Quarter: 2010Q3

REPORT INFORMATION
  Report Type: 
  Country: None (occurrence: None)
  Receive Date: 20100924
  Receipt Date: 20100914
  Transmission Date: 20110219
  Serious: Yes (Hospitalization)
  Sender: FDA-Public Use
  Company Number: 019103

PATIENT
  Sex: Male

DRUGS (7)
  1. CERTOLIZUMAB PEGOL (CDP870) [Suspect]
     Indication: RHEUMATOID ARTHRITIS
     Dosage: (400 MG 1X/4 WEEKS SUBCUTANEOUS)
     Route: 058
     Dates: start: 20100720
  2. METHOTREXATE [Concomitant]
  3. FOLIC ACID [Concomitant]
  4. PREDNISOLONE [Concomitant]
  5. DICLOFENAC SODIUM [Concomitant]
  6. SALAZOSULFAPYRIDINE [Concomitant]
  7. FAMOTIDINE [Concomitant]

REACTIONS (1)
  - APPENDICITIS [None]
